FAERS Safety Report 8551561-2 (Version None)
Quarter: 2012Q3

REPORT INFORMATION
  Report Type: 
  Country: None (occurrence: None)
  Receive Date: 20120730
  Receipt Date: 20120716
  Transmission Date: 20120928
  Serious: Yes (Other)
  Sender: FDA-Public Use
  Company Number: GB-ROCHE-1089776

PATIENT
  Sex: Female

DRUGS (1)
  1. HERCEPTIN [Suspect]
     Indication: BREAST CANCER

REACTIONS (5)
  - NECK PAIN [None]
  - NAIL GROWTH ABNORMAL [None]
  - IMMUNE SYSTEM DISORDER [None]
  - MYALGIA [None]
  - BACK PAIN [None]
